FAERS Safety Report 24686364 (Version 1)
Quarter: 2024Q4

REPORT INFORMATION
  Report Type: Spontaneous
  Country: US (occurrence: US)
  Receive Date: 20241202
  Receipt Date: 20241202
  Transmission Date: 20250115
  Serious: Yes (Other)
  Sender: BRISTOL-MYERS SQUIBB COMPANY
  Company Number: US-BRISTOL-MYERS SQUIBB COMPANY-2024-186879

PATIENT
  Sex: Female

DRUGS (1)
  1. REPOTRECTINIB [Suspect]
     Active Substance: REPOTRECTINIB
     Indication: Product used for unknown indication

REACTIONS (5)
  - Atonic seizures [Unknown]
  - Dizziness [Unknown]
  - Fall [Unknown]
  - Neuropathy peripheral [Unknown]
  - Diarrhoea [Unknown]
